FAERS Safety Report 6506583-X (Version None)
Quarter: 2009Q4

REPORT INFORMATION
  Report Type: 
  Country: None (occurrence: None)
  Receive Date: 20091216
  Receipt Date: 20091203
  Transmission Date: 20100525
  Serious: Yes (Other)
  Sender: FDA-Public Use
  Company Number: AE 2009-156

PATIENT
  Sex: Female

DRUGS (1)
  1. GESTICARE DHA [Suspect]
     Dosage: 1 TABLET PO DAILY
     Route: 048
     Dates: start: 20091029

REACTIONS (9)
  - ABDOMINAL PAIN UPPER [None]
  - ABORTION SPONTANEOUS [None]
  - CONTUSION [None]
  - DRUG EXPOSURE DURING PREGNANCY [None]
  - FATIGUE [None]
  - HEADACHE [None]
  - INSOMNIA [None]
  - PAIN [None]
  - RASH [None]
